FAERS Safety Report 8588494-1 (Version None)
Quarter: 2012Q3

REPORT INFORMATION
  Report Type: 
  Country: None (occurrence: None)
  Receive Date: 20120813
  Receipt Date: 20120803
  Transmission Date: 20120928
  Serious: Yes (Other)
  Sender: FDA-Public Use
  Company Number: PE-JNJFOC-20120803498

PATIENT
  Sex: Male
  Weight: 68 kg

DRUGS (3)
  1. METHOTREXATE SODIUM [Concomitant]
     Route: 065
  2. VITAMIN [Concomitant]
     Route: 065
  3. REMICADE [Suspect]
     Indication: PRODUCT USED FOR UNKNOWN INDICATION
     Route: 042

REACTIONS (3)
  - SKIN LESION [None]
  - WEIGHT DECREASED [None]
  - RASH ERYTHEMATOUS [None]
